FAERS Safety Report 23297063 (Version 1)
Quarter: 2023Q4

REPORT INFORMATION
  Report Type: Spontaneous
  Country: CZ (occurrence: CZ)
  Receive Date: 20231214
  Receipt Date: 20231214
  Transmission Date: 20240109
  Serious: Yes (Life-Threatening, Other)
  Sender: FDA-Public Use
  Company Number: None

PATIENT
  Age: 65 Year
  Sex: Female
  Weight: 116 kg

DRUGS (11)
  1. IBRANCE [Suspect]
     Active Substance: PALBOCICLIB
     Indication: Breast cancer
     Dosage: 3 WEEK INTERVAL WITH 1 DOSE PER DAY, AFTER THAT 1 WEEK BREAK
     Route: 048
     Dates: start: 20220502, end: 20231122
  2. IBRANCE [Suspect]
     Active Substance: PALBOCICLIB
     Dosage: REDUCTION OF THE PREVIOUS DOSE
     Dates: start: 202311
  3. BISOPROLOL [Concomitant]
     Active Substance: BISOPROLOL\BISOPROLOL FUMARATE
     Dosage: 1-0-0
  4. CALCIUM\CHOLECALCIFEROL [Concomitant]
     Active Substance: CALCIUM\CHOLECALCIFEROL
     Dosage: 1-0-0
  5. WARFARIN [Concomitant]
     Active Substance: WARFARIN
  6. FASLODEX [Concomitant]
     Active Substance: FULVESTRANT
     Indication: Breast cancer
     Dosage: ONCE A MONTH TWO INJECTIONS
     Route: 030
     Dates: start: 20220502
  7. ROSUVASTATIN CALCIUM [Concomitant]
     Active Substance: ROSUVASTATIN CALCIUM
  8. ACETAMINOPHEN\TRAMADOL HYDROCHLORIDE [Concomitant]
     Active Substance: ACETAMINOPHEN\TRAMADOL HYDROCHLORIDE
  9. MAGNESIUM CARBONATE\MAGNESIUM OXIDE [Concomitant]
     Active Substance: MAGNESIUM CARBONATE\MAGNESIUM OXIDE
  10. VALSARTAN [Concomitant]
     Active Substance: VALSARTAN
     Dosage: 1-0-0
  11. PROPAFENONE [Concomitant]
     Active Substance: PROPAFENONE
     Dosage: 150 MG IN SCHEME 1-1-1

REACTIONS (2)
  - Haematotoxicity [Unknown]
  - Neutropenia [Unknown]

NARRATIVE: CASE EVENT DATE: 20231123
